FAERS Safety Report 5493966-2 (Version None)
Quarter: 2007Q4

REPORT INFORMATION
  Report Type: 
  Country: None (occurrence: None)
  Receive Date: 20071023
  Receipt Date: 20071011
  Transmission Date: 20080405
  Serious: Yes (Other)
  Sender: FDA-Public Use
  Company Number: US-GENENTECH-249300

PATIENT
  Sex: Female

DRUGS (2)
  1. AVASTIN [Suspect]
     Indication: MACULAR DEGENERATION
     Dosage: UNK, UNK
     Route: 031
     Dates: start: 20071005
  2. LUCENTIS [Suspect]
     Indication: MACULAR DEGENERATION

REACTIONS (2)
  - EYE PAIN [None]
  - VITREOUS FLOATERS [None]
